FAERS Safety Report 10407751 (Version 1)
Quarter: 2014Q3

REPORT INFORMATION
  Report Type: Spontaneous
  Country: FR (occurrence: FR)
  Receive Date: 20140825
  Receipt Date: 20140825
  Transmission Date: 20150326
  Serious: Yes (Hospitalization)
  Sender: FDA-Public Use
  Company Number: FR-PFIZER INC-2014234811

PATIENT
  Age: 85 Year
  Sex: Female

DRUGS (16)
  1. JANUMET [Concomitant]
     Active Substance: METFORMIN HYDROCHLORIDE\SITAGLIPTIN PHOSPHATE
  2. INIPOMP [Suspect]
     Active Substance: PANTOPRAZOLE SODIUM
     Indication: GASTROOESOPHAGEAL REFLUX DISEASE
     Dosage: 20 MG, 1X/DAY
     Route: 048
  3. LASILIX SPECIAL [Concomitant]
     Active Substance: FUROSEMIDE
     Dosage: UNK
  4. CONTRAMAL [Concomitant]
     Active Substance: TRAMADOL HYDROCHLORIDE
  5. DAFALGAN [Concomitant]
     Active Substance: ACETAMINOPHEN
  6. TAHOR [Concomitant]
     Active Substance: ATORVASTATIN CALCIUM
  7. PLAVIX [Concomitant]
     Active Substance: CLOPIDOGREL BISULFATE
  8. TERBUTALINE [Concomitant]
     Active Substance: TERBUTALINE
  9. ECONAZOLE [Concomitant]
     Active Substance: ECONAZOLE
  10. CALCIPARINE [Concomitant]
     Active Substance: HEPARIN CALCIUM
  11. KARDEGIC [Concomitant]
     Active Substance: ASPIRIN LYSINE
  12. IPRATROPIUM [Concomitant]
     Active Substance: IPRATROPIUM
  13. AUGMENTIN [Suspect]
     Active Substance: AMOXICILLIN\CLAVULANATE POTASSIUM
     Indication: BRONCHOPNEUMOPATHY
     Dosage: UNK
     Route: 048
     Dates: start: 201403
  14. CETIRIZINE [Concomitant]
     Active Substance: CETIRIZINE HYDROCHLORIDE
  15. TAVANIC [Suspect]
     Active Substance: LEVOFLOXACIN
     Indication: BRONCHOPNEUMOPATHY
     Dosage: UNK
     Dates: start: 201403
  16. JANUVIA [Concomitant]
     Active Substance: SITAGLIPTIN PHOSPHATE
     Dosage: UNK

REACTIONS (3)
  - Renal failure acute [Recovered/Resolved]
  - Dehydration [Recovered/Resolved]
  - Clostridium difficile colitis [Recovered/Resolved]

NARRATIVE: CASE EVENT DATE: 20140409
